FAERS Safety Report 19805618 (Version 1)
Quarter: 2021Q3

REPORT INFORMATION
  Report Type: Report from Study
  Country: FR (occurrence: FR)
  Receive Date: 20210908
  Receipt Date: 20210908
  Transmission Date: 20211014
  Serious: Yes (Hospitalization)
  Sender: FDA-Public Use
  Company Number: NVSC2021FR201789

PATIENT
  Age: 15 Year
  Sex: Male

DRUGS (1)
  1. OMNITROPE [Suspect]
     Active Substance: SOMATROPIN
     Indication: PRODUCT USED FOR UNKNOWN INDICATION
     Dosage: 1.5 MG (6/7 DAYS)
     Route: 058
     Dates: start: 20210716

REACTIONS (3)
  - Fall [Unknown]
  - Ear injury [Unknown]
  - Skull fracture [Unknown]

NARRATIVE: CASE EVENT DATE: 20210831
